FAERS Safety Report 6805079-5 (Version None)
Quarter: 2010Q2

REPORT INFORMATION
  Report Type: 
  Country: None (occurrence: None)
  Receive Date: 20100628
  Receipt Date: 20070813
  Transmission Date: 20101027
  Serious: No
  Sender: FDA-Public Use
  Company Number: US-PFIZER INC-2007069545

PATIENT
  Age: 80 Year
  Sex: Female

DRUGS (6)
  1. NIFEDIPINE [Suspect]
     Dosage: 30 MG ONCE DAILY
     Route: 048
     Dates: start: 20060101
  2. LIPITOR [Concomitant]
     Dosage: 10 MG ONCE DAILY
  3. ESOMEPRAZOLE SODIUM [Concomitant]
     Dosage: ONCE DAILY
  4. DYAZIDE [Concomitant]
     Dosage: 37.5 MG ONCE DAILY
  5. ATENOLOL [Concomitant]
     Dosage: 25 MG ONCE DAILY
  6. ALLOPURINOL [Concomitant]
     Dosage: 300 MG ONCE DAILY

REACTIONS (1)
  - DRUG EFFECT DECREASED [None]
